FAERS Safety Report 20092517 (Version 1)
Quarter: 2021Q4

REPORT INFORMATION
  Report Type: Spontaneous
  Country: CA (occurrence: None)
  Receive Date: 20211119
  Receipt Date: 20211119
  Transmission Date: 20220303
  Serious: Yes (Hospitalization)
  Sender: FDA-Public Use
  Company Number: CA-ROCHE-2960276

PATIENT
  Age: 79 Year
  Sex: Male

DRUGS (20)
  1. RITUXIMAB [Suspect]
     Active Substance: RITUXIMAB
     Indication: Granulomatosis with polyangiitis
     Route: 042
  2. AMITRIPTYLINE;KETAMINE [Concomitant]
  3. AMLODIPINE [Concomitant]
     Active Substance: AMLODIPINE BESYLATE
  4. CALCIUM CARBONATE [Concomitant]
     Active Substance: CALCIUM CARBONATE
  5. CAPTOPRIL [Concomitant]
     Active Substance: CAPTOPRIL
  6. DALTEPARIN SODIUM [Concomitant]
     Active Substance: DALTEPARIN SODIUM
  7. DIMENHYDRINATE [Concomitant]
     Active Substance: DIMENHYDRINATE
  8. DOCUSATE [Concomitant]
     Active Substance: DOCUSATE
  9. ETHAMBUTOL [Concomitant]
     Active Substance: ETHAMBUTOL HYDROCHLORIDE
  10. ISONIAZID [Concomitant]
     Active Substance: ISONIAZID
  11. LOXAPINE [Concomitant]
     Active Substance: LOXAPINE
  12. MELATONIN [Concomitant]
     Active Substance: MELATONIN
  13. PREDNISONE [Concomitant]
     Active Substance: PREDNISONE
  14. PREGABALIN [Concomitant]
     Active Substance: PREGABALIN
  15. PYRAZINAMIDE [Concomitant]
     Active Substance: PYRAZINAMIDE
  16. QUETIAPINE [Concomitant]
     Active Substance: QUETIAPINE
  17. RIFAMPIN [Concomitant]
     Active Substance: RIFAMPIN
  18. RIVASTIGMINE [Concomitant]
     Active Substance: RIVASTIGMINE
  19. SULFAMETHOXAZOLE\TRIMETHOPRIM [Concomitant]
     Active Substance: SULFAMETHOXAZOLE\TRIMETHOPRIM
  20. VITAMIN B6 [Concomitant]
     Active Substance: PYRIDOXINE HYDROCHLORIDE

REACTIONS (1)
  - Illness [Unknown]
